FAERS Safety Report 21570441 (Version 1)
Quarter: 2022Q4

REPORT INFORMATION
  Report Type: Report from Study
  Country: US (occurrence: US)
  Receive Date: 20221109
  Receipt Date: 20221109
  Transmission Date: 20230112
  Serious: No
  Sender: FDA-Public Use
  Company Number: US-ABBVIE-4138900

PATIENT
  Sex: Female

DRUGS (19)
  1. RINVOQ [Suspect]
     Active Substance: UPADACITINIB
     Indication: Psoriatic arthropathy
     Dosage: FORM STRENGTH: 15 MILLIGRAM
     Route: 048
     Dates: start: 20220615
  2. HYDROCORTISONE [Concomitant]
     Active Substance: HYDROCORTISONE
     Indication: Product used for unknown indication
     Dosage: FORM STRENGTH: 2.5 PERCENT? 2.5%
  3. VERAPAMIL [Concomitant]
     Active Substance: VERAPAMIL HYDROCHLORIDE
     Indication: Product used for unknown indication
     Dosage: TAB 240MG ER?FORM STRENGTH: 240 MILLIGRAM
     Route: 048
  4. RESTASIS [Concomitant]
     Active Substance: CYCLOSPORINE
     Indication: Product used for unknown indication
     Dosage: EMU 0.05% OP?FORM STRENGTH: 0.05 PERCENT
  5. HYDROCHLOROTHIAZIDE\TRIAMTERENE [Concomitant]
     Active Substance: HYDROCHLOROTHIAZIDE\TRIAMTERENE
     Indication: Product used for unknown indication
     Dosage: TAB 37.5-25
     Route: 048
  6. MAXZIDE [Concomitant]
     Active Substance: HYDROCHLOROTHIAZIDE\TRIAMTERENE
     Indication: Product used for unknown indication
     Dosage: 25 TAB
     Route: 048
  7. ALEVE [Concomitant]
     Active Substance: NAPROXEN SODIUM
     Indication: Product used for unknown indication
     Dosage: TAB 220MG?FORM STRENGTH: 220 MILLIGRAM
     Route: 048
  8. CLARITIN RDT [Concomitant]
     Indication: Product used for unknown indication
     Dosage: TAB 10MG?FORM STRENGTH: 10 MILLIGRAM
     Route: 048
  9. RESTASIS MUL [Concomitant]
     Indication: Product used for unknown indication
     Dosage: EMU 0.05%?FORM STRENGTH: 0.05 PERCENT
  10. PRALUENT [Concomitant]
     Active Substance: ALIROCUMAB
     Indication: Product used for unknown indication
     Dosage: 150 MG/ML PEN?FORM STRENGTH: 150 MILLIGRAM/MILLILITERS
  11. LEVALBUTEROL [Concomitant]
     Active Substance: LEVALBUTEROL
     Indication: Product used for unknown indication
     Dosage: AER 45/ACT
  12. SHINGRIX [Concomitant]
     Active Substance: RECOMBINANT VARICELLA ZOSTER VIRUS (VZV) GLYCOPROTEIN E
     Indication: Product used for unknown indication
     Dosage: INJ 50/0.5ML
  13. CYCLOBENZAPRINE [Concomitant]
     Active Substance: CYCLOBENZAPRINE
     Indication: Product used for unknown indication
     Dosage: TAB 10MG?FORM STRENGTH: 10 MILLIGRAM
     Route: 048
  14. SULFASALAZINE DELAYED-RELEASE [Concomitant]
     Active Substance: SULFASALAZINE
     Indication: Product used for unknown indication
     Dosage: TAB 500MG?FORM STRENGTH: 500 MILLIGRAM
     Route: 048
  15. METHYLPREDNISOLONE [Concomitant]
     Active Substance: METHYLPREDNISOLONE
     Indication: Product used for unknown indication
     Dosage: TAB 4MG?FORM STRENGTH: 4 MILLIGRAM
     Route: 048
  16. METOPROL SUC [Concomitant]
     Indication: Product used for unknown indication
     Dosage: TAB 50MG ER?-FORM STRENGTH: 50 MILLIGRAM
     Route: 048
  17. TERAZOSIN [Concomitant]
     Active Substance: TERAZOSIN HYDROCHLORIDE
     Indication: Product used for unknown indication
     Dosage: CAP 2MG?FORM STRENGTH: 2 MILLIGRAM
     Route: 048
  18. XOPENEX [Concomitant]
     Active Substance: LEVALBUTEROL HYDROCHLORIDE
     Indication: Product used for unknown indication
     Dosage: NEB 0.31MG?FORM STRENGTH: 0.31 MILLIGRAM
  19. FLUTICASONE [Concomitant]
     Active Substance: FLUTICASONE
     Indication: Product used for unknown indication
     Dosage: SPR 50MCG?FORM STRENGTH: 50 MICROGRAM

REACTIONS (2)
  - Psoriatic arthropathy [Not Recovered/Not Resolved]
  - Pain [Not Recovered/Not Resolved]

NARRATIVE: CASE EVENT DATE: 20220101
